FAERS Safety Report 10010735 (Version 1)
Quarter: 2014Q1

REPORT INFORMATION
  Report Type: Spontaneous
  Country: US (occurrence: US)
  Receive Date: 20140314
  Receipt Date: 20140314
  Transmission Date: 20141002
  Serious: Yes (Other)
  Sender: FDA-Public Use
  Company Number: US-JNJFOC-20140304879

PATIENT
  Age: 83 Year
  Sex: Female
  Weight: 97.98 kg

DRUGS (20)
  1. XARELTO [Suspect]
     Indication: ATRIAL FIBRILLATION
     Route: 048
     Dates: start: 20130226, end: 20140228
  2. XARELTO [Suspect]
     Indication: CEREBROVASCULAR ACCIDENT PROPHYLAXIS
     Route: 048
     Dates: start: 20130226, end: 20140228
  3. POTASSIUM [Concomitant]
     Route: 065
  4. ADVAIR [Concomitant]
     Route: 065
  5. ALBUTEROL [Concomitant]
     Route: 065
  6. PREDNISONE [Concomitant]
     Route: 065
  7. ABILIFY [Concomitant]
     Route: 065
  8. FENTANYL [Concomitant]
     Route: 062
  9. ZOLOFT [Concomitant]
     Route: 065
  10. TRAZODONE [Concomitant]
     Route: 065
  11. HUMALOG [Concomitant]
     Route: 065
  12. LANTUS [Concomitant]
     Route: 065
  13. OMEPRAZOLE [Concomitant]
     Route: 065
  14. SIMVASTATIN [Concomitant]
     Route: 065
  15. AMIODARONE [Concomitant]
     Route: 065
  16. LOSARTAN [Concomitant]
     Route: 065
  17. TOPROL [Concomitant]
     Route: 065
  18. SYNTHROID [Concomitant]
     Route: 065
  19. AMBIEN [Concomitant]
     Route: 065
  20. ACTONEL [Concomitant]
     Route: 065

REACTIONS (1)
  - Deep vein thrombosis [Recovered/Resolved]
